FAERS Safety Report 23331794 (Version 1)
Quarter: 2023Q4

REPORT INFORMATION
  Report Type: Spontaneous
  Country: DE (occurrence: DE)
  Receive Date: 20231222
  Receipt Date: 20231222
  Transmission Date: 20240110
  Serious: Yes (Death, Other)
  Sender: FDA-Public Use
  Company Number: DE-BAXTER-2023BAX035543

PATIENT
  Age: 78 Year
  Sex: Female

DRUGS (2)
  1. OLIMEL [Suspect]
     Active Substance: AMINO ACIDS\DEXTROSE\SOYBEAN OIL
     Indication: Intradialytic parenteral nutrition
     Dosage: AT AN UNSPECIFIED DOSE AND FREQUENCY AT A RATE OF 80 ML/H VIA DIALYSIS IV
     Route: 042
     Dates: start: 20231019
  2. OLIMEL [Suspect]
     Active Substance: AMINO ACIDS\DEXTROSE\SOYBEAN OIL
     Indication: Malnutrition

REACTIONS (6)
  - Pulmonary sepsis [Fatal]
  - Multiple organ dysfunction syndrome [Fatal]
  - Clostridium difficile colitis [Fatal]
  - Clostridium test positive [Fatal]
  - Diarrhoea [Unknown]
  - Gastrointestinal wall thickening [Unknown]

NARRATIVE: CASE EVENT DATE: 20231019
